FAERS Safety Report 12954535 (Version 4)
Quarter: 2016Q4

REPORT INFORMATION
  Report Type: Spontaneous
  Country: PL (occurrence: PL)
  Receive Date: 20161118
  Receipt Date: 20161223
  Transmission Date: 20170207
  Serious: Yes (Hospitalization)
  Sender: FDA-Public Use
  Company Number: PL-ROCHE-1856103

PATIENT
  Sex: Female
  Weight: 59 kg

DRUGS (15)
  1. ACTILYSE [Suspect]
     Active Substance: ALTEPLASE
     Indication: THROMBOSIS
     Route: 042
     Dates: start: 20161109, end: 20161111
  2. HEPARIN [Concomitant]
     Active Substance: HEPARIN SODIUM
  3. ACIDUM FOLICUM [Concomitant]
     Active Substance: FOLIC ACID
     Dosage: 15 MG LONG THERAPY
     Route: 065
  4. HEMOFER PROLONGATUM [Concomitant]
     Dosage: 3 WEEK LONG
     Route: 065
  5. LEVOXA [Concomitant]
     Active Substance: LEVOFLOXACIN
     Route: 065
  6. DICOFLOR [Concomitant]
     Route: 065
  7. XARELTO [Concomitant]
     Active Substance: RIVAROXABAN
     Route: 065
  8. ACTILYSE [Suspect]
     Active Substance: ALTEPLASE
     Route: 042
     Dates: start: 20161112, end: 20161114
  9. KALIPOZ [Concomitant]
     Active Substance: POTASSIUM CHLORIDE
     Route: 065
  10. ACTILYSE [Suspect]
     Active Substance: ALTEPLASE
     Route: 042
     Dates: start: 20161021, end: 20161028
  11. DIANE (CYPROTERONE ACETATE\ETHINYL ESTRADIOL) [Concomitant]
     Active Substance: CYPROTERONE ACETATE\ETHINYL ESTRADIOL
  12. XARELTO [Concomitant]
     Active Substance: RIVAROXABAN
     Dosage: 21 DAY LONG THERAPY
     Route: 065
  13. NOLPAZA (POLAND) [Concomitant]
     Route: 065
  14. NOLPAZA (POLAND) [Concomitant]
     Route: 065
  15. ULTRAVIST [Concomitant]
     Active Substance: IOPROMIDE
     Route: 065
     Dates: start: 20161109

REACTIONS (4)
  - Thrombosis [Unknown]
  - Blood fibrinogen decreased [Unknown]
  - Injection site haematoma [Unknown]
  - Product quality issue [Unknown]
